FAERS Safety Report 18637599 (Version 1)
Quarter: 2020Q4

REPORT INFORMATION
  Report Type: Spontaneous
  Country: IT (occurrence: IT)
  Receive Date: 20201218
  Receipt Date: 20201218
  Transmission Date: 20210114
  Serious: Yes (Death, Hospitalization)
  Sender: FDA-Public Use
  Company Number: IT-MYLANLABS-2020M1102818

PATIENT
  Age: 26 Year
  Sex: Male

DRUGS (9)
  1. BLEOMYCIN [Suspect]
     Active Substance: BLEOMYCIN SULFATE
     Indication: HODGKIN^S DISEASE RECURRENT
     Dosage: GIVEN FOR 5 CYCLES
     Route: 065
  2. PROCARBAZINE [Suspect]
     Active Substance: PROCARBAZINE
     Indication: HODGKIN^S DISEASE RECURRENT
     Dosage: GIVEN AS A PART OF MOPP CHEMOTHERAPY REGIMEN FOR 6 CYCLES DURING LOCAL AND ABDOMINAL RECURRENCE..
     Route: 065
  3. VINBLASTINE [Suspect]
     Active Substance: VINBLASTINE
     Indication: HODGKIN^S DISEASE RECURRENT
     Dosage: UNK
     Route: 065
  4. MECHLORETHAMINE [Suspect]
     Active Substance: MECHLORETHAMINE
     Indication: HODGKIN^S DISEASE RECURRENT
     Dosage: GIVEN AS A PART OF MOPP CHEMOTHERAPY REGIMEN FOR 6 CYCLES..
     Route: 065
  5. DOXORUBICIN [Suspect]
     Active Substance: DOXORUBICIN
     Indication: HODGKIN^S DISEASE RECURRENT
     Dosage: GIVEN FOR 5 CYCLES
     Route: 065
  6. DACARBAZINE. [Suspect]
     Active Substance: DACARBAZINE
     Indication: HODGKIN^S DISEASE RECURRENT
     Dosage: UNK
     Route: 065
  7. PREDNISONE. [Suspect]
     Active Substance: PREDNISONE
     Indication: HODGKIN^S DISEASE RECURRENT
     Dosage: GIVEN AS A PART OF MOPP CHEMOTHERAPY REGIMEN FOR 6 CYCLES..
     Route: 065
  8. VINCRISTINE [Suspect]
     Active Substance: VINCRISTINE
     Indication: HODGKIN^S DISEASE RECURRENT
     Dosage: GIVEN AS A PART OF MOPP CHEMOTHERAPY REGIMEN FOR 6 CYCLES..
     Route: 065
  9. GEMCITABINE. [Concomitant]
     Active Substance: GEMCITABINE
     Indication: LEIOMYOSARCOMA METASTATIC
     Dosage: UNK
     Route: 065

REACTIONS (4)
  - Leiomyosarcoma metastatic [Fatal]
  - Stenosis [Recovered/Resolved]
  - Hypertension [Recovered/Resolved]
  - Hepatic cancer [Fatal]
